FAERS Safety Report 6781329-9 (Version None)
Quarter: 2010Q2

REPORT INFORMATION
  Report Type: 
  Country: None (occurrence: None)
  Receive Date: 20100621
  Receipt Date: 20100609
  Transmission Date: 20101027
  Serious: Yes (Hospitalization, Other)
  Sender: FDA-Public Use
  Company Number: US-NOVOPROD-305518

PATIENT
  Age: 31 Year
  Sex: Male
  Weight: 77 kg

DRUGS (1)
  1. NOVOSEVEN [Suspect]
     Indication: HAEMOPHILIA A WITH ANTI FACTOR VIII
     Dosage: MULTIPLE INFUSIONS
     Route: 042

REACTIONS (5)
  - BLOOD FIBRINOGEN INCREASED [None]
  - DEEP VEIN THROMBOSIS [None]
  - PYREXIA [None]
  - SEPTIC EMBOLUS [None]
  - THROMBOPHLEBITIS SUPERFICIAL [None]
